FAERS Safety Report 23837071 (Version 2)
Quarter: 2024Q2

REPORT INFORMATION
  Report Type: Spontaneous
  Country: PT (occurrence: PT)
  Receive Date: 20240509
  Receipt Date: 20240515
  Transmission Date: 20240716
  Serious: Yes (Hospitalization, Other)
  Sender: FDA-Public Use
  Company Number: PT-LUNDBECK-DKLU3077623

PATIENT
  Age: 55 Year
  Sex: Female

DRUGS (7)
  1. BRINTELLIX [Suspect]
     Active Substance: VORTIOXETINE HYDROBROMIDE
     Indication: Major depression
     Dosage: 10 MILLIGRAM
     Route: 048
     Dates: start: 20231106, end: 20240212
  2. TIBOLONE [Suspect]
     Active Substance: TIBOLONE
     Indication: Hormone replacement therapy
     Dosage: 2.5 MILLIGRAM, QD
     Route: 065
     Dates: end: 20240226
  3. TIBOLONE [Suspect]
     Active Substance: TIBOLONE
     Indication: Menopausal symptoms
  4. CALCIFEDIOL [Concomitant]
     Active Substance: CALCIFEDIOL
     Indication: Product used for unknown indication
     Dosage: 0.266 MILLIGRAM
     Route: 065
  5. ESTRIOL [Concomitant]
     Active Substance: ESTRIOL
     Indication: Menopausal symptoms
     Dosage: UNK
     Route: 065
     Dates: end: 20240226
  6. METFORMIN [Concomitant]
     Active Substance: METFORMIN HYDROCHLORIDE
     Indication: Type 2 diabetes mellitus
     Dosage: UNK
     Route: 065
  7. ROSUVASTATIN [Concomitant]
     Active Substance: ROSUVASTATIN
     Indication: Dyslipidaemia
     Dosage: 10 MILLIGRAM
     Route: 065

REACTIONS (4)
  - Reversible cerebral vasoconstriction syndrome [Unknown]
  - Thunderclap headache [Recovering/Resolving]
  - Photophobia [Unknown]
  - Nausea [Unknown]

NARRATIVE: CASE EVENT DATE: 20240212
